FAERS Safety Report 10216376 (Version 2)
Quarter: 2014Q2

REPORT INFORMATION
  Report Type: Spontaneous
  Country: US (occurrence: None)
  Receive Date: 20140602
  Receipt Date: 20140617
  Transmission Date: 20141212
  Serious: Yes (Hospitalization)
  Sender: FDA-Public Use
  Company Number: US-001007

PATIENT
  Sex: Male

DRUGS (3)
  1. GATTEX [Suspect]
     Indication: SHORT-BOWEL SYNDROME
     Route: 058
     Dates: start: 20140211, end: 20140603
  2. SOLUTIONS FOR PARENTERAL NUTRITION [Suspect]
     Indication: MEDICAL DIET
     Dosage: DF
     Dates: end: 201401
  3. SOLUTIONS FOR PARENTERAL NUTRITION [Concomitant]

REACTIONS (5)
  - Chromaturia [None]
  - Abnormal faeces [None]
  - Infection [None]
  - Weight increased [None]
  - Fluid overload [None]
